FAERS Safety Report 19117646 (Version 1)
Quarter: 2021Q2

REPORT INFORMATION
  Report Type: Spontaneous
  Country: US (occurrence: US)
  Receive Date: 20210409
  Receipt Date: 20210409
  Transmission Date: 20210717
  Serious: Yes (Hospitalization, Other)
  Sender: FDA-Public Use
  Company Number: US-TEVA-2021-US-1896291

PATIENT
  Age: 86 Year
  Sex: Female

DRUGS (1)
  1. MEXILETINE HYDROCHLORIDE. [Suspect]
     Active Substance: MEXILETINE HYDROCHLORIDE
     Route: 065

REACTIONS (5)
  - Product use complaint [Unknown]
  - Dysphagia [Unknown]
  - Wrong technique in product usage process [Unknown]
  - Dementia [Unknown]
  - Choking [Unknown]
